FAERS Safety Report 13504582 (Version 2)
Quarter: 2017Q3

REPORT INFORMATION
  Report Type: Spontaneous
  Country: US (occurrence: US)
  Receive Date: 20170502
  Receipt Date: 20170724
  Transmission Date: 20171127
  Serious: No
  Sender: FDA-Public Use
  Company Number: US-IMPAX LABORATORIES, INC-2017-IPXL-00814

PATIENT
  Sex: Male
  Weight: 70 kg

DRUGS (20)
  1. MELATONIN [Concomitant]
     Active Substance: MELATONIN
     Dosage: 5 MG, BEDTIME
     Route: 065
  2. SINEMET [Suspect]
     Active Substance: CARBIDOPA\LEVODOPA
     Indication: PARKINSON^S DISEASE
     Dosage: 25/100 MG, UNK
     Route: 048
  3. ARICEPT [Concomitant]
     Active Substance: DONEPEZIL HYDROCHLORIDE
     Dosage: 15 MG, DAILY
     Route: 065
  4. MIRALAX [Concomitant]
     Active Substance: POLYETHYLENE GLYCOL 3350
     Indication: CONSTIPATION
     Dosage: UNK UNK, DAILY
     Route: 065
  5. LIPITOR [Concomitant]
     Active Substance: ATORVASTATIN CALCIUM
     Indication: PRODUCT USED FOR UNKNOWN INDICATION
     Dosage: 40 MG, 1 /DAY
     Route: 048
  6. ARICEPT [Concomitant]
     Active Substance: DONEPEZIL HYDROCHLORIDE
     Dosage: 10 MG, EVENING
     Route: 065
  7. FLOMAX [Concomitant]
     Active Substance: TAMSULOSIN HYDROCHLORIDE
     Indication: PRODUCT USED FOR UNKNOWN INDICATION
     Dosage: 0.4 MG CAPSULE (24 HOUR ER), UNK
     Route: 048
  8. MELATONIN [Concomitant]
     Active Substance: MELATONIN
     Dosage: 10 MG, BEDTIME
     Route: 065
  9. METHOTREXATE SODIUM. [Concomitant]
     Active Substance: METHOTREXATE SODIUM
     Indication: PRODUCT USED FOR UNKNOWN INDICATION
     Dosage: 2.5 MG TABLET, UNK
     Route: 048
  10. TAMSULOSIN [Concomitant]
     Active Substance: TAMSULOSIN
     Indication: PRODUCT USED FOR UNKNOWN INDICATION
     Dosage: 0.4 MG (ER FOR 24 HOUR), UNK
     Route: 048
  11. RYTARY [Suspect]
     Active Substance: CARBIDOPA\LEVODOPA
     Dosage: 36.25/145MG (2 CAPSULES AT 6AM AND AT 10AM) AND 23.75/95MG (2 CAPSULES AT 2PM AND 1 CAPSULE AT 6PM
     Route: 048
     Dates: start: 2017
  12. AZILECT [Concomitant]
     Active Substance: RASAGILINE MESYLATE
     Indication: PARKINSON^S DISEASE
     Dosage: 1 MG TABLET, 1 /DAY
     Route: 048
  13. CITALOPRAM [Concomitant]
     Active Substance: CITALOPRAM HYDROBROMIDE
     Indication: PRODUCT USED FOR UNKNOWN INDICATION
     Dosage: 20 MG TABLET, UNK
     Route: 048
  14. RYTARY [Suspect]
     Active Substance: CARBIDOPA\LEVODOPA
     Indication: PARKINSON^S DISEASE
     Dosage: 36.25/145MG (2 CAPSULES AT 6AM AND AT 10AM) AND 23.75/95MG (3 CAPSULES AT 2PM AND 2 CAPSULES AT 6PM)
     Route: 048
     Dates: start: 201701
  15. RYTARY [Suspect]
     Active Substance: CARBIDOPA\LEVODOPA
     Dosage: 36.25/145MG (2 CAPS AT 6AM AND AT 10AM) AND 23.75/95MG (3 CAPS AT 2PM AND 2 CAPS AT 6PM THEN 1 CAP)
     Route: 048
     Dates: start: 2017
  16. ARICEPT [Concomitant]
     Active Substance: DONEPEZIL HYDROCHLORIDE
     Indication: PARKINSON^S DISEASE
     Dosage: 5 MG, UNK
     Route: 065
     Dates: start: 201703
  17. MELATONIN [Concomitant]
     Active Substance: MELATONIN
     Indication: INSOMNIA
     Dosage: 3 MG, BEDTIME
     Route: 065
  18. RYTARY [Suspect]
     Active Substance: CARBIDOPA\LEVODOPA
     Dosage: 36.25/145MG (2 CAPSULES AT 6AM AND AT 10AM) AND 23.75/95MG (2 CAPSULES AT 2PM AND 1 CAPSULE AT 6PM
     Route: 048
     Dates: start: 2017
  19. RYTARY [Suspect]
     Active Substance: CARBIDOPA\LEVODOPA
     Dosage: 36.25/145MG (2 CAPSULES AT 6AM AND AT 10AM) AND 23.75/95MG (3 CAPSULES AT 2PM AND 1 CAPSULES AT 6PM)
     Route: 048
     Dates: start: 2017
  20. NEUPRO [Suspect]
     Active Substance: ROTIGOTINE
     Indication: PARKINSON^S DISEASE
     Dosage: UNK
     Route: 065
     Dates: start: 201704

REACTIONS (9)
  - Paraesthesia [Not Recovered/Not Resolved]
  - Tremor [Recovering/Resolving]
  - Asthenia [Not Recovered/Not Resolved]
  - Sleep disorder [Unknown]
  - Therapeutic response shortened [Unknown]
  - Fatigue [Recovered/Resolved]
  - Dizziness [Unknown]
  - Dyskinesia [Unknown]
  - Drug effect delayed [Unknown]
